FAERS Safety Report 11962154 (Version 1)
Quarter: 2016Q1

REPORT INFORMATION
  Report Type: Spontaneous
  Country: TR (occurrence: TR)
  Receive Date: 20160126
  Receipt Date: 20160126
  Transmission Date: 20160526
  Serious: Yes (Other)
  Sender: FDA-Public Use
  Company Number: TR-WATSON-2016-00414

PATIENT
  Age: 35 Year
  Sex: Female

DRUGS (2)
  1. LEVETIRACETAM (UNKNOWN) [Suspect]
     Active Substance: LEVETIRACETAM
     Indication: EPILEPSY
     Dosage: 1000 MG, DAILY
     Route: 065
  2. LEVETIRACETAM (UNKNOWN) [Suspect]
     Active Substance: LEVETIRACETAM
     Dosage: 500 MG, DAILY
     Route: 065

REACTIONS (1)
  - Guttate psoriasis [Recovered/Resolved]
